FAERS Safety Report 5957338-6 (Version None)
Quarter: 2008Q4

REPORT INFORMATION
  Report Type: 
  Country: None (occurrence: None)
  Receive Date: 20081114
  Receipt Date: 20081030
  Transmission Date: 20090506
  Serious: Yes (Hospitalization)
  Sender: FDA-Public Use
  Company Number: APP200801096

PATIENT
  Age: 70 Year
  Sex: Male

DRUGS (2)
  1. IFOSFAMIDE [Suspect]
     Indication: MALIGNANT NEOPLASM OF PLEURA
     Dosage: 2500 MG/M2, 1 IN 1 D, INTRAVENOUS
     Route: 042
  2. EPIRUBICIN HYDROCHLORIDE [Suspect]
     Indication: MALIGNANT NEOPLASM OF PLEURA
     Dosage: 20 MG/M2, 1 IN 1 D, INTRAVENOUS
     Route: 042

REACTIONS (3)
  - LEUKOPENIA [None]
  - NEUTROPENIA [None]
  - PALMAR-PLANTAR ERYTHRODYSAESTHESIA SYNDROME [None]
